FAERS Safety Report 24880772 (Version 2)
Quarter: 2025Q1

REPORT INFORMATION
  Report Type: Spontaneous
  Country: ES (occurrence: ES)
  Receive Date: 20250123
  Receipt Date: 20250128
  Transmission Date: 20250408
  Serious: Yes (Hospitalization, Other)
  Sender: MERCK
  Company Number: ES-009507513-2410ESP004607

PATIENT
  Age: 45 Year
  Sex: Female
  Weight: 54.3 kg

DRUGS (5)
  1. PEMBROLIZUMAB [Suspect]
     Active Substance: PEMBROLIZUMAB
     Indication: Non-small cell lung cancer metastatic
     Route: 042
     Dates: start: 20240704, end: 20240814
  2. FOLIC ACID [Concomitant]
     Active Substance: FOLIC ACID
     Indication: Prophylaxis
     Dates: start: 20240606, end: 20240904
  3. BECLOMETHASONE [Concomitant]
     Active Substance: BECLOMETHASONE
     Indication: Non-small cell lung cancer metastatic
     Dates: start: 20240506
  4. FORMOTEROL [Concomitant]
     Active Substance: FORMOTEROL
     Indication: Non-small cell lung cancer metastatic
     Dates: start: 20240506
  5. LOPERAMIDE [Concomitant]
     Active Substance: LOPERAMIDE
     Indication: Diarrhoea
     Dates: start: 20240819, end: 20240820

REACTIONS (1)
  - Immune-mediated hepatitis [Recovered/Resolved with Sequelae]

NARRATIVE: CASE EVENT DATE: 20240819
